FAERS Safety Report 13814672 (Version 1)
Quarter: 2017Q3

REPORT INFORMATION
  Report Type: Spontaneous
  Country: US (occurrence: US)
  Receive Date: 20170731
  Receipt Date: 20170731
  Transmission Date: 20171127
  Serious: Yes (Disabling)
  Sender: FDA-Public Use
  Company Number: None

PATIENT
  Age: 65 Year
  Sex: Male
  Weight: 72.64 kg

DRUGS (1)
  1. LEVAFLOXACIN 500MG TABLETS [Suspect]
     Active Substance: LEVOFLOXACIN
     Indication: NASOPHARYNGITIS
     Dates: start: 20170101

REACTIONS (8)
  - Pain in extremity [None]
  - Tendon rupture [None]
  - Swelling [None]
  - Neuropathy peripheral [None]
  - Cataract [None]
  - Arthralgia [None]
  - Walking aid user [None]
  - Depression [None]

NARRATIVE: CASE EVENT DATE: 20170119
